FAERS Safety Report 5491120-1 (Version None)
Quarter: 2007Q4

REPORT INFORMATION
  Report Type: 
  Country: None (occurrence: None)
  Receive Date: 20071019
  Receipt Date: 20071007
  Transmission Date: 20080405
  Serious: Yes (Life-Threatening, Hospitalization)
  Sender: FDA-Public Use
  Company Number: AT-PFIZER INC-2007073155

PATIENT
  Sex: Male
  Weight: 93 kg

DRUGS (11)
  1. ZYVOX [Suspect]
     Indication: ENTEROCOCCAL INFECTION
     Dates: start: 20070827, end: 20070828
  2. SEROPRAM [Interacting]
  3. TAZONAM [Concomitant]
     Route: 042
  4. ERYTHROCIN [Concomitant]
     Route: 048
  5. NOVALGIN [Concomitant]
  6. CALCIUM [Concomitant]
  7. PANTOPRAZOLE SODIUM [Concomitant]
  8. NEOSTIGMINE [Concomitant]
  9. FRAXIPARIN [Concomitant]
  10. ACTRAPID [Concomitant]
     Route: 042
  11. NAROPIN [Concomitant]
     Route: 008

REACTIONS (3)
  - DRUG INTERACTION [None]
  - PLATELET COUNT INCREASED [None]
  - SHOCK [None]
